FAERS Safety Report 6910700-7 (Version None)
Quarter: 2010Q3

REPORT INFORMATION
  Report Type: 
  Country: None (occurrence: None)
  Receive Date: 20100806
  Receipt Date: 20100726
  Transmission Date: 20110219
  Serious: Yes (Life-Threatening, Hospitalization, Other)
  Sender: FDA-Public Use
  Company Number: JP-PFIZER INC-2010081896

PATIENT
  Age: 83 Year
  Sex: Female
  Weight: 47.166 kg

DRUGS (4)
  1. ZOLOFT [Suspect]
     Indication: DEPRESSION
     Dosage: 50 MG, 1X/DAY
     Route: 048
     Dates: start: 20100326, end: 20100629
  2. LIPITOR [Concomitant]
     Indication: HYPERLIPIDAEMIA
     Dosage: 10 MG, 1X/DAY
     Route: 048
     Dates: end: 20100630
  3. AZELASTINE HCL [Concomitant]
     Indication: HYPERTENSION
     Dosage: 16 MG, 1X/DAY
     Route: 048
  4. URSO 250 [Concomitant]
     Indication: CHOLESTASIS
     Dosage: 200 MG, 3X/DAY
     Route: 048
     Dates: start: 20091111

REACTIONS (2)
  - MELAENA [None]
  - THROMBOCYTOPENIC PURPURA [None]
